FAERS Safety Report 6773433-6 (Version None)
Quarter: 2010Q2

REPORT INFORMATION
  Report Type: 
  Country: None (occurrence: None)
  Receive Date: 20100616
  Receipt Date: 20100412
  Transmission Date: 20101027
  Serious: No
  Sender: FDA-Public Use
  Company Number: US-ABBOTT-10P-163-0638996-00

PATIENT
  Sex: Female

DRUGS (9)
  1. TRILIPIX [Suspect]
     Indication: BLOOD TRIGLYCERIDES INCREASED
     Dates: start: 20100301, end: 20100301
  2. TRILIPIX [Suspect]
     Dates: start: 20100301
  3. DIGOXIN [Concomitant]
     Indication: DRUG USE FOR UNKNOWN INDICATION
  4. GLIMEPIRIDE [Concomitant]
     Indication: DRUG USE FOR UNKNOWN INDICATION
  5. LISINOPRIL [Concomitant]
     Indication: DRUG USE FOR UNKNOWN INDICATION
  6. FLECAINIDE ACETATE [Concomitant]
     Indication: DRUG USE FOR UNKNOWN INDICATION
  7. ATENALOL [Concomitant]
     Indication: DRUG USE FOR UNKNOWN INDICATION
  8. COUMADIN [Concomitant]
     Indication: DRUG USE FOR UNKNOWN INDICATION
  9. SIMVASTATIN [Concomitant]
     Indication: DRUG USE FOR UNKNOWN INDICATION

REACTIONS (1)
  - GAIT DISTURBANCE [None]
